FAERS Safety Report 4834708-0 (Version None)
Quarter: 2005Q4

REPORT INFORMATION
  Report Type: 
  Country: None (occurrence: None)
  Receive Date: 20051114
  Receipt Date: 20051031
  Transmission Date: 20060501
  Serious: Yes (Other)
  Sender: FDA-Public Use
  Company Number: 2005148348

PATIENT
  Age: 53 Year
  Sex: Male

DRUGS (2)
  1. VIAGRA [Suspect]
     Indication: ERECTILE DYSFUNCTION
     Dosage: (50 MG,)
     Dates: start: 20050101
  2. PROPECIA [Concomitant]

REACTIONS (1)
  - PEYRONIE'S DISEASE [None]
